FAERS Safety Report 23685356 (Version 1)
Quarter: 2024Q1

REPORT INFORMATION
  Report Type: Report from Study
  Country: NL (occurrence: NL)
  Receive Date: 20240329
  Receipt Date: 20240329
  Transmission Date: 20240409
  Serious: Yes (Hospitalization)
  Sender: FDA-Public Use
  Company Number: NL-MYLANLABS-2024M1027314

PATIENT
  Age: 65 Year
  Sex: Male

DRUGS (1)
  1. CREON [Suspect]
     Active Substance: PANCRELIPASE AMYLASE\PANCRELIPASE LIPASE\PANCRELIPASE PROTEASE
     Indication: Product used for unknown indication
     Dosage: 25.000 PER UNIT
     Route: 048
     Dates: start: 20200215

REACTIONS (1)
  - Lymphoma [Recovering/Resolving]

NARRATIVE: CASE EVENT DATE: 20240226
